FAERS Safety Report 12542468 (Version 2)
Quarter: 2016Q3

REPORT INFORMATION
  Report Type: Spontaneous
  Country: IT (occurrence: IT)
  Receive Date: 20160708
  Receipt Date: 20160709
  Transmission Date: 20161109
  Serious: Yes (Other)
  Sender: FDA-Public Use
  Company Number: IT-CIPLA LTD.-2013IT00701

PATIENT

DRUGS (1)
  1. CITALOPRAM [Suspect]
     Active Substance: CITALOPRAM HYDROBROMIDE
     Dosage: UNK
     Route: 064

REACTIONS (4)
  - Hypertonia [Recovering/Resolving]
  - Foetal exposure during pregnancy [Unknown]
  - Agitation neonatal [Recovering/Resolving]
  - Withdrawal syndrome [Recovering/Resolving]
